FAERS Safety Report 22530467 (Version 1)
Quarter: 2023Q2

REPORT INFORMATION
  Report Type: Spontaneous
  Country: US (occurrence: None)
  Receive Date: 20230607
  Receipt Date: 20230607
  Transmission Date: 20230722
  Serious: Yes (Life-Threatening, Hospitalization, Other)
  Sender: FDA-Public Use
  Company Number: US-MLMSERVICE-20230517-4289386-1

PATIENT
  Age: 5 Decade
  Sex: Female

DRUGS (12)
  1. PROPOFOL [Suspect]
     Active Substance: PROPOFOL
     Indication: Sedation
     Route: 065
  2. PROPOFOL [Suspect]
     Active Substance: PROPOFOL
     Route: 065
  3. PROPOFOL [Suspect]
     Active Substance: PROPOFOL
     Route: 065
  4. PROPOFOL [Suspect]
     Active Substance: PROPOFOL
     Route: 065
  5. OXYGEN [Concomitant]
     Active Substance: OXYGEN
     Indication: Hypoxia
     Dosage: HIGH FLOW
     Route: 045
  6. OXYGEN [Concomitant]
     Active Substance: OXYGEN
     Route: 045
  7. OXYGEN [Concomitant]
     Active Substance: OXYGEN
     Dosage: BILEVEL POSITIVE AIRWAY PRESSURE
     Route: 045
  8. CISATRACURIUM [Concomitant]
     Active Substance: CISATRACURIUM
     Indication: Mechanical ventilation complication
     Dosage: UNKNOWN
     Route: 065
  9. EPOPROSTENOL [Concomitant]
     Active Substance: EPOPROSTENOL
     Indication: Oxygen therapy
     Dosage: AEROSOLISED
     Route: 065
  10. FENTANYL [Concomitant]
     Active Substance: FENTANYL
     Indication: Sedation
     Route: 065
  11. FENTANYL [Concomitant]
     Active Substance: FENTANYL
     Route: 065
  12. MIDAZOLAM [Concomitant]
     Active Substance: MIDAZOLAM
     Indication: Mechanical ventilation complication
     Dosage: UNKNOWN
     Route: 065

REACTIONS (6)
  - Shock [Unknown]
  - Propofol infusion syndrome [Recovering/Resolving]
  - Acute kidney injury [Unknown]
  - Atrial fibrillation [Recovering/Resolving]
  - Metabolic acidosis [Unknown]
  - Respiratory acidosis [Unknown]
